FAERS Safety Report 4449033-X (Version None)
Quarter: 2004Q3

REPORT INFORMATION
  Report Type: 
  Country: None (occurrence: None)
  Receive Date: 20040909
  Receipt Date: 20040824
  Transmission Date: 20050211
  Serious: Yes (Hospitalization)
  Sender: FDA-Public Use
  Company Number: 203605

PATIENT
  Age: 34 Year
  Sex: Female

DRUGS (1)
  1. AVONEX [Suspect]
     Indication: MULTIPLE SCLEROSIS
     Dosage: 30 MCG QW IM
     Route: 030
     Dates: start: 20030316, end: 20040701

REACTIONS (3)
  - CHOLANGITIS SCLEROSING [None]
  - HEPATITIS [None]
  - PANCREATITIS [None]
